FAERS Safety Report 6028050-2 (Version None)
Quarter: 2008Q4

REPORT INFORMATION
  Report Type: 
  Country: None (occurrence: None)
  Receive Date: 20081231
  Receipt Date: 20081215
  Transmission Date: 20090506
  Serious: Yes (Other)
  Sender: FDA-Public Use
  Company Number: 124269

PATIENT
  Age: 27 Year
  Sex: Female

DRUGS (12)
  1. ETOPOSIDE [Suspect]
     Indication: GESTATIONAL TROPHOBLASTIC TUMOUR
     Dosage: INTRAVENOUS BOLUS; 100 MG/M2 ( EVERY 12 HOURS X 4 ) INTRAVENOUS
     Route: 042
  2. VINCRISTINE [Suspect]
     Indication: GESTATIONAL TROPHOBLASTIC TUMOUR
  3. DACTINOMYCIN [Suspect]
     Indication: GESTATIONAL TROPHOBLASTIC TUMOUR
     Dosage: INTRAVENOUS BOLUS; .5 MG ( EVERY 12 HOURS X 4 ) INTRAVENOUS
  4. METHOTREXATE [Suspect]
     Indication: GESTATIONAL TROPHOBLASTIC TUMOUR
     Dosage: INTRAVENOUS BOLUS; INTRAVENOUS
     Route: 042
  5. CYCLOPHOSPHAMIDE [Suspect]
     Indication: GESTATIONAL TROPHOBLASTIC TUMOUR
  6. (SODIUM PERCHLORATE) [Concomitant]
  7. METHIMAZOLE [Concomitant]
  8. PROPRANOLOL [Concomitant]
  9. (FOLINIC ACID) [Concomitant]
  10. (ADRENERGIC AGENTS, CARDIAC) [Concomitant]
  11. MANNITOL [Concomitant]
  12. (I.V. SOLUTIONS) [Concomitant]

REACTIONS (9)
  - BLOOD ALBUMIN DECREASED [None]
  - BRAIN OEDEMA [None]
  - DYSPNOEA [None]
  - GENERAL PHYSICAL HEALTH DETERIORATION [None]
  - HAEMOPTYSIS [None]
  - HEPATIC FUNCTION ABNORMAL [None]
  - RESPIRATORY FAILURE [None]
  - SHOCK [None]
  - THROMBOCYTOPENIA [None]
